FAERS Safety Report 4384232-7 (Version None)
Quarter: 2004Q2

REPORT INFORMATION
  Report Type: 
  Country: None (occurrence: None)
  Receive Date: 20040607
  Receipt Date: 20030722
  Transmission Date: 20050107
  Serious: Yes (Other)
  Sender: FDA-Public Use
  Company Number: 322179

PATIENT
  Sex: Male
  Weight: 3.1 kg

DRUGS (2)
  1. ACCUTANE [Suspect]
     Indication: ACNE CYSTIC
     Dosage: 40 MG 1 PER WEEK ORAL
     Route: 048
     Dates: start: 20020215, end: 20020908
  2. EFFEXOR [Concomitant]

REACTIONS (3)
  - INFARCTION [None]
  - NORMAL NEWBORN [None]
  - PLACENTAL DISORDER [None]
